FAERS Safety Report 5659015-8 (Version None)
Quarter: 2008Q1

REPORT INFORMATION
  Report Type: 
  Country: None (occurrence: None)
  Receive Date: 20080310
  Receipt Date: 20070518
  Transmission Date: 20080703
  Serious: No
  Sender: FDA-Public Use
  Company Number: US-BAYER-200711617BCC

PATIENT
  Age: 60 Year
  Sex: Female
  Weight: 59 kg

DRUGS (4)
  1. ALEVE (CAPLET) [Suspect]
     Indication: DRUG USE FOR UNKNOWN INDICATION
     Dosage: TOTAL DAILY DOSE: 880 MG  UNIT DOSE: 220 MG
     Route: 048
     Dates: start: 20070518
  2. EFFEXOR [Concomitant]
  3. WELLBUTRIN [Concomitant]
  4. TRAZODONE HCL [Concomitant]

REACTIONS (2)
  - NO ADVERSE EVENT [None]
  - OVERDOSE [None]
